FAERS Safety Report 9406945 (Version 1)
Quarter: 2013Q3

REPORT INFORMATION
  Report Type: Spontaneous
  Country: US (occurrence: US)
  Receive Date: 20130718
  Receipt Date: 20130718
  Transmission Date: 20140515
  Serious: No
  Sender: FDA-Public Use
  Company Number: US-PFIZER INC-2013206548

PATIENT
  Age: 64 Year
  Sex: Female
  Weight: 58.96 kg

DRUGS (4)
  1. NARDIL [Suspect]
     Indication: ANXIETY
     Dosage: UNK
     Route: 048
     Dates: end: 2013
  2. NARDIL [Suspect]
     Dosage: UNK
     Route: 048
     Dates: start: 20130712
  3. PHENELZINE SULFATE [Suspect]
     Indication: ANXIETY
     Dosage: 15 MG, 3X/DAY
     Route: 048
     Dates: start: 201307, end: 20130711
  4. XANAX [Concomitant]
     Indication: NERVOUSNESS
     Dosage: UNK, AS NEEDED

REACTIONS (4)
  - Diarrhoea [Not Recovered/Not Resolved]
  - Abnormal sensation in eye [Not Recovered/Not Resolved]
  - Poor quality drug administered [Unknown]
  - Product quality issue [Unknown]
